FAERS Safety Report 8008285-X (Version None)
Quarter: 2011Q4

REPORT INFORMATION
  Report Type: 
  Country: None (occurrence: None)
  Receive Date: 20111222
  Receipt Date: 20111222
  Transmission Date: 20120403
  Serious: Yes (Other)
  Sender: FDA-Public Use
  Company Number: None

PATIENT
  Sex: Female
  Weight: 61.8 kg

DRUGS (2)
  1. BUPROPION HCL [Suspect]
     Indication: BIPOLAR DISORDER
     Dosage: 300MG. QD PO
     Route: 048
     Dates: start: 20070501
  2. BUPROPION HCL [Suspect]
     Indication: BIPOLAR DISORDER
     Dosage: 300MG. QD PO
     Route: 048
     Dates: start: 20030301

REACTIONS (2)
  - PRODUCT SIZE ISSUE [None]
  - CHOKING SENSATION [None]
